FAERS Safety Report 13437356 (Version 1)
Quarter: 2017Q2

REPORT INFORMATION
  Report Type: Report from Study
  Country: ES (occurrence: ES)
  Receive Date: 20170413
  Receipt Date: 20170413
  Transmission Date: 20170830
  Serious: Yes (Death, Hospitalization)
  Sender: FDA-Public Use
  Company Number: ES-PFIZER INC-2017159642

PATIENT
  Age: 76 Year
  Sex: Male

DRUGS (7)
  1. ENOXAPARIN [Concomitant]
     Active Substance: ENOXAPARIN
     Indication: PROPHYLAXIS
     Dosage: 40 MG, UNK
     Route: 058
     Dates: start: 20150724
  2. MEROPENEM. [Concomitant]
     Active Substance: MEROPENEM
     Indication: ABDOMINAL SEPSIS
     Dosage: 2GR/8H
     Route: 042
     Dates: start: 20150729
  3. TYGACIL [Suspect]
     Active Substance: TIGECYCLINE
     Indication: ABDOMINAL SEPSIS
     Dosage: 100 MG/12H
     Route: 042
     Dates: start: 20150729, end: 20150812
  4. MYCAMINE [Suspect]
     Active Substance: MICAFUNGIN SODIUM
     Indication: ABDOMINAL SEPSIS
     Dosage: 100 MG, 1X/DAY
     Route: 042
     Dates: start: 20150729, end: 20150813
  5. FUROSEMIDE. [Concomitant]
     Active Substance: FUROSEMIDE
     Indication: FLUID OVERLOAD
     Dosage: 20MG/8H
     Route: 042
     Dates: start: 20150712
  6. PANTOPRAZOLE SODIUM SESQUIHYDRATE [Concomitant]
     Active Substance: PANTOPRAZOLE SODIUM
     Indication: PROPHYLAXIS AGAINST GASTROINTESTINAL ULCER
     Dosage: 20 MG, 3X/DAY
     Route: 042
     Dates: start: 20150724
  7. COTRIMOXAZOL [Concomitant]
     Active Substance: SULFAMETHOXAZOLE\TRIMETHOPRIM
     Indication: ABDOMINAL SEPSIS
     Dosage: 2 U/8H
     Route: 042
     Dates: start: 20150724

REACTIONS (1)
  - Hepatitis cholestatic [Fatal]

NARRATIVE: CASE EVENT DATE: 20150812
